FAERS Safety Report 22737032 (Version 2)
Quarter: 2023Q4

REPORT INFORMATION
  Report Type: Spontaneous
  Country: CR (occurrence: CR)
  Receive Date: 20230721
  Receipt Date: 20231130
  Transmission Date: 20240109
  Serious: Yes (Other)
  Sender: FDA-Public Use
  Company Number: CR-PFIZER INC-PV202300122209

PATIENT
  Age: 79 Year
  Sex: Female

DRUGS (1)
  1. IBRANCE [Suspect]
     Active Substance: PALBOCICLIB
     Dosage: 125 MG, CYCLIC (ONCE A DAY FOR 21 DAYS AND A WEEK OFF)
     Dates: start: 2022

REACTIONS (11)
  - Chronic obstructive pulmonary disease [Unknown]
  - Fatigue [Unknown]
  - Stomatitis [Unknown]
  - Taste disorder [Unknown]
  - Dry skin [Unknown]
  - Pruritus [Unknown]
  - Dry mouth [Unknown]
  - Dry eye [Unknown]
  - Ageusia [Unknown]
  - Skin exfoliation [Unknown]
  - Gait disturbance [Unknown]
